FAERS Safety Report 9366203 (Version 1)
Quarter: 2013Q2

REPORT INFORMATION
  Report Type: Report from Study
  Country: CN (occurrence: CN)
  Receive Date: 20130625
  Receipt Date: 20130625
  Transmission Date: 20140414
  Serious: Yes (Death)
  Sender: FDA-Public Use
  Company Number: CN-ASTELLAS-2013JP006960

PATIENT
  Sex: Male

DRUGS (2)
  1. TACROLIMUS [Suspect]
     Indication: RENAL TRANSPLANT
     Dosage: 0.5 MG, BID
     Route: 048
     Dates: end: 2008
  2. CICLOSPORIN [Suspect]
     Indication: RENAL TRANSPLANT
     Route: 048

REACTIONS (1)
  - Death [Fatal]
